FAERS Safety Report 13371310 (Version 1)
Quarter: 2017Q1

REPORT INFORMATION
  Report Type: Spontaneous
  Country: US (occurrence: US)
  Receive Date: 20170324
  Receipt Date: 20170324
  Transmission Date: 20170429
  Serious: Yes (Other)
  Sender: FDA-Public Use
  Company Number: US-ELI_LILLY_AND_COMPANY-US201608002790

PATIENT
  Sex: Female

DRUGS (5)
  1. CYMBALTA [Suspect]
     Active Substance: DULOXETINE HYDROCHLORIDE
     Dosage: 60MG, BID
     Route: 048
     Dates: start: 20140709
  2. CYMBALTA [Suspect]
     Active Substance: DULOXETINE HYDROCHLORIDE
     Dosage: 60MG, QD
     Route: 048
     Dates: start: 20140516
  3. LYRICA [Concomitant]
     Active Substance: PREGABALIN
     Indication: MYOFASCIAL PAIN SYNDROME
     Dosage: 100MG BID
  4. TRADOL [Concomitant]
     Active Substance: TRAMADOL HYDROCHLORIDE
     Indication: MYOFASCIAL PAIN SYNDROME
     Dosage: 60, UNK
  5. CYMBALTA [Suspect]
     Active Substance: DULOXETINE HYDROCHLORIDE
     Indication: MYOFASCIAL PAIN SYNDROME
     Dosage: 30MG, DAILY
     Route: 048
     Dates: start: 20140405

REACTIONS (12)
  - Paraesthesia [Unknown]
  - Nausea [Unknown]
  - Dizziness [Unknown]
  - Headache [Unknown]
  - Drug withdrawal syndrome [Unknown]
  - Seizure [Unknown]
  - Confusional state [Unknown]
  - Sensory disturbance [Unknown]
  - Fatigue [Unknown]
  - Vertigo [Unknown]
  - Anxiety [Unknown]
  - Dysphoria [Unknown]
